FAERS Safety Report 5332228-0 (Version None)
Quarter: 2007Q2

REPORT INFORMATION
  Report Type: 
  Country: None (occurrence: None)
  Receive Date: 20070523
  Receipt Date: 20070523
  Transmission Date: 20071010
  Serious: Yes (Death, Hospitalization)
  Sender: FDA-Public Use
  Company Number: CZ-BRISTOL-MYERS SQUIBB COMPANY-13483664

PATIENT
  Age: 71 Year
  Sex: Male
  Weight: 65 kg

DRUGS (13)
  1. CISPLATIN [Suspect]
     Indication: NON-SMALL CELL LUNG CANCER
     Route: 042
     Dates: start: 20060724, end: 20060724
  2. GEMCITABINE [Suspect]
     Indication: NON-SMALL CELL LUNG CANCER
     Route: 042
     Dates: start: 20060731, end: 20060731
  3. PANCREATIN TRIPLE STRENGTH CAP [Concomitant]
     Route: 048
     Dates: start: 19840101, end: 20060809
  4. PERINDOPRIL ERBUMINE [Concomitant]
     Route: 048
     Dates: start: 20050101, end: 20060809
  5. AMLODIPINE [Concomitant]
     Route: 048
     Dates: start: 20050101, end: 20060809
  6. INSULIN HUMAN [Concomitant]
     Route: 058
     Dates: start: 20030701, end: 20060809
  7. OMEPRAZOLE [Concomitant]
     Route: 048
     Dates: start: 20000401, end: 20060809
  8. MAGNESIUM LACTATE [Concomitant]
     Route: 048
     Dates: start: 20060401, end: 20060809
  9. POTASSIUM CHLORATE [Concomitant]
     Route: 048
     Dates: start: 20060721, end: 20060807
  10. IBUPROFEN [Concomitant]
     Route: 048
     Dates: start: 20060101, end: 20060809
  11. METAMIZOLE SODIUM [Concomitant]
     Route: 048
     Dates: start: 20060101, end: 20060809
  12. IPRATROPIUM BROMIDE [Concomitant]
     Route: 048
     Dates: start: 20060426, end: 20060809
  13. METOCLOPRAMIDE [Concomitant]
     Route: 048
     Dates: start: 20060724, end: 20060807

REACTIONS (4)
  - DEHYDRATION [None]
  - DIARRHOEA [None]
  - HYPOCALCAEMIA [None]
  - RENAL FAILURE [None]
